FAERS Safety Report 11813259 (Version 2)
Quarter: 2016Q1

REPORT INFORMATION
  Report Type: Report from Study
  Country: CA (occurrence: CA)
  Receive Date: 20151209
  Receipt Date: 20160115
  Transmission Date: 20160525
  Serious: Yes (Hospitalization, Other)
  Sender: FDA-Public Use
  Company Number: CA-AMGEN-CANSL2015130106

PATIENT
  Age: 53 Year
  Sex: Male
  Weight: 86.17 kg

DRUGS (5)
  1. ENBREL [Suspect]
     Active Substance: ETANERCEPT
     Indication: ANKYLOSING SPONDYLITIS
     Dosage: 50 MG, QWK
     Route: 058
     Dates: start: 20141107
  2. PREDNISONE. [Concomitant]
     Active Substance: PREDNISONE
     Dosage: 40 MG, UNK
     Route: 048
     Dates: start: 201402
  3. TRAZODONE [Concomitant]
     Active Substance: TRAZODONE HYDROCHLORIDE
     Indication: PAIN
     Dosage: 150 MG, UNK
     Route: 048
     Dates: start: 201303
  4. DICLOFENAC [Concomitant]
     Active Substance: DICLOFENAC
     Indication: PAIN
     Dosage: 75 MG, BID
     Route: 048
     Dates: start: 201401
  5. GABAPENTIN. [Concomitant]
     Active Substance: GABAPENTIN
     Indication: PAIN
     Dosage: 300 MG, BID
     Route: 048
     Dates: start: 201401

REACTIONS (14)
  - Cauda equina syndrome [Not Recovered/Not Resolved]
  - Dry throat [Unknown]
  - Ocular discomfort [Unknown]
  - Eye pain [Not Recovered/Not Resolved]
  - Head discomfort [Unknown]
  - Spinal column stenosis [Unknown]
  - Pain [Unknown]
  - Fatigue [Unknown]
  - Limb discomfort [Unknown]
  - Asthenia [Unknown]
  - Dry eye [Unknown]
  - Condition aggravated [Unknown]
  - Ocular surface disease [Recovering/Resolving]
  - Pain in extremity [Unknown]

NARRATIVE: CASE EVENT DATE: 2015
